FAERS Safety Report 4281923-3 (Version None)
Quarter: 2004Q1

REPORT INFORMATION
  Report Type: 
  Country: None (occurrence: None)
  Receive Date: 20040128
  Receipt Date: 20040119
  Transmission Date: 20041129
  Serious: Yes (Death)
  Sender: FDA-Public Use
  Company Number: 99-08-0099

PATIENT
  Age: 59 Year
  Sex: Male

DRUGS (3)
  1. THALOMID [Suspect]
     Indication: MULTIPLE MYELOMA
     Dosage: 150 MG, QD, ORAL
     Route: 048
     Dates: start: 19990723, end: 19990808
  2. HYDROCODONE (HYDROCODONE) [Concomitant]
  3. OXYCODONE HCL [Concomitant]

REACTIONS (2)
  - INTESTINAL PERFORATION [None]
  - SEPSIS [None]
